FAERS Safety Report 12163713 (Version 1)
Quarter: 2016Q1

REPORT INFORMATION
  Report Type: Spontaneous
  Country: CA (occurrence: CA)
  Receive Date: 20160309
  Receipt Date: 20160309
  Transmission Date: 20160526
  Serious: Yes (Other)
  Sender: FDA-Public Use
  Company Number: CA-TEVA-641888ACC

PATIENT
  Age: 66 Year
  Sex: Female
  Weight: 98.97 kg

DRUGS (2)
  1. CISPLATIN INJECTION [Suspect]
     Active Substance: CISPLATIN
     Indication: LUNG CANCER METASTATIC
     Route: 042
  2. GEMCITABINE [Concomitant]
     Active Substance: GEMCITABINE\GEMCITABINE HYDROCHLORIDE

REACTIONS (1)
  - Deep vein thrombosis [Unknown]
